FAERS Safety Report 22379872 (Version 5)
Quarter: 2023Q2

REPORT INFORMATION
  Report Type: Report from Study
  Country: CN (occurrence: None)
  Receive Date: 20230529
  Receipt Date: 20230629
  Transmission Date: 20230722
  Serious: Yes (Hospitalization)
  Sender: FDA-Public Use
  Company Number: CN-ROCHE-3355052

PATIENT
  Age: 48 Year
  Sex: Female
  Weight: 55 kg

DRUGS (22)
  1. MOSUNETUZUMAB [Suspect]
     Active Substance: MOSUNETUZUMAB
     Indication: Non-Hodgkin^s lymphoma unspecified histology indolent
     Dosage: START DATE OF MOST RECENT DOSE 30 MG OF MOSUNETUZUMAB PRIOR TO SAE: 26/APR/2023 12:16 PM TO 2:20 PM
     Route: 042
     Dates: start: 20230307
  2. LENALIDOMIDE [Suspect]
     Active Substance: LENALIDOMIDE
     Indication: Non-Hodgkin^s lymphoma unspecified histology indolent
     Dosage: START DATE OF MOST RECENT DOSE 20 MG OF STUDY DRUG PRIOR TO SAE: 15/MAY/2023 AT 11:00 AM
     Route: 048
  3. ENTECAVIR [Concomitant]
     Active Substance: ENTECAVIR
     Route: 048
     Dates: start: 202008
  4. DEXAMETHASONE SODIUM PHOSPHATE [Concomitant]
     Active Substance: DEXAMETHASONE SODIUM PHOSPHATE
     Route: 042
     Dates: start: 20230426, end: 20230426
  5. ESOMEPRAZOLE SODIUM [Concomitant]
     Active Substance: ESOMEPRAZOLE SODIUM
     Route: 042
     Dates: start: 20230426, end: 20230426
  6. METHOXYPHENAMINE HYDROCHLORIDE [Concomitant]
     Active Substance: METHOXYPHENAMINE HYDROCHLORIDE
     Route: 048
     Dates: start: 20230513
  7. CEFDINIR [Concomitant]
     Active Substance: CEFDINIR
     Indication: Influenza like illness
     Route: 048
     Dates: start: 20230513
  8. ACETAMINOPHEN [Concomitant]
     Active Substance: ACETAMINOPHEN
     Indication: COVID-19
     Route: 048
     Dates: start: 20230516
  9. AMBROXOL HYDROCHLORIDE [Concomitant]
     Active Substance: AMBROXOL HYDROCHLORIDE
     Indication: COVID-19
     Route: 042
     Dates: start: 20230517, end: 20230517
  10. AMBROXOL HYDROCHLORIDE [Concomitant]
     Active Substance: AMBROXOL HYDROCHLORIDE
     Route: 042
     Dates: start: 20230517, end: 20230517
  11. CEFUROXIME SODIUM [Concomitant]
     Active Substance: CEFUROXIME SODIUM
     Route: 042
     Dates: start: 20230521, end: 20230526
  12. BETAMETHASONE SODIUM PHOSPHATE [Concomitant]
     Active Substance: BETAMETHASONE SODIUM PHOSPHATE
     Route: 042
     Dates: start: 20230520, end: 20230526
  13. NIRMATRELVIR\RITONAVIR [Concomitant]
     Active Substance: NIRMATRELVIR\RITONAVIR
     Route: 048
     Dates: start: 20230521, end: 20230526
  14. THYMOPOLYPEPTIDES [Concomitant]
     Route: 048
     Dates: start: 20230526
  15. STRONG LOQUAT LOTION (TRADITIONAL CHINESE MEDICINE) [Concomitant]
     Route: 048
     Dates: start: 20230526, end: 20230528
  16. MONTELUKAST SODIUM [Concomitant]
     Active Substance: MONTELUKAST SODIUM
     Route: 048
     Dates: start: 20230526, end: 20230528
  17. PREDNISONE ACETATE [Concomitant]
     Active Substance: PREDNISONE ACETATE
     Route: 048
     Dates: start: 20230526
  18. ALBUTEROL [Concomitant]
     Active Substance: ALBUTEROL
     Indication: COVID-19
     Route: 055
     Dates: start: 20230520, end: 20230526
  19. BUDESONIDE [Concomitant]
     Active Substance: BUDESONIDE
     Indication: COVID-19
     Route: 055
     Dates: start: 20230520, end: 20230526
  20. AMBROXOL HYDROCHLORIDE [Concomitant]
     Active Substance: AMBROXOL HYDROCHLORIDE
     Indication: COVID-19
     Route: 042
     Dates: start: 20230520, end: 20230526
  21. POTASSIUM CHLORIDE [Concomitant]
     Active Substance: POTASSIUM CHLORIDE
     Indication: Hypokalaemia
     Route: 048
     Dates: start: 20230521, end: 20230524
  22. ACETYLCYSTEINE [Concomitant]
     Active Substance: ACETYLCYSTEINE
     Indication: COVID-19
     Route: 048
     Dates: start: 20230602, end: 20230607

REACTIONS (1)
  - COVID-19 pneumonia [Recovering/Resolving]

NARRATIVE: CASE EVENT DATE: 20230517
